FAERS Safety Report 8338148-1 (Version None)
Quarter: 2012Q2

REPORT INFORMATION
  Report Type: 
  Country: None (occurrence: None)
  Receive Date: 20120504
  Receipt Date: 20120502
  Transmission Date: 20120825
  Serious: No
  Sender: FDA-Public Use
  Company Number: US-PFIZER INC-2012108094

PATIENT
  Sex: Female
  Weight: 75 kg

DRUGS (1)
  1. CLEOCIN HYDROCHLORIDE [Suspect]
     Indication: VAGINITIS BACTERIAL
     Dosage: UNK, 1X/DAY
     Route: 067
     Dates: start: 20120416, end: 20120418

REACTIONS (1)
  - HYPOAESTHESIA [None]
